FAERS Safety Report 10654770 (Version 1)
Quarter: 2014Q4

REPORT INFORMATION
  Report Type: Spontaneous
  Country: US (occurrence: None)
  Receive Date: 20141215
  Receipt Date: 20141215
  Transmission Date: 20150529
  Serious: Yes (Other)
  Sender: FDA-Public Use
  Company Number: None

PATIENT
  Age: 58 Year
  Sex: Male
  Weight: 81.65 kg

DRUGS (2)
  1. CATAPRES-TTS [Suspect]
     Active Substance: CLONIDINE
     Indication: HYPERTENSION
     Dosage: 1 PATCH, WEEKLY, TRANSDERMAL
     Route: 062
     Dates: start: 20141204, end: 20141213
  2. INSULIN [Concomitant]
     Active Substance: INSULIN NOS

REACTIONS (8)
  - Headache [None]
  - Blood pressure increased [None]
  - Product quality issue [None]
  - Chest pain [None]
  - Product substitution issue [None]
  - Withdrawal hypertension [None]
  - Epistaxis [None]
  - Peripheral coldness [None]

NARRATIVE: CASE EVENT DATE: 20141207
